FAERS Safety Report 6661439-7 (Version None)
Quarter: 2010Q1

REPORT INFORMATION
  Report Type: 
  Country: None (occurrence: None)
  Receive Date: 20100331
  Receipt Date: 20100324
  Transmission Date: 20100710
  Serious: Yes (Other)
  Sender: FDA-Public Use
  Company Number: HU-MERCK-1003USA03989

PATIENT
  Age: 27 Year
  Sex: Female
  Weight: 64 kg

DRUGS (1)
  1. ZETIA [Suspect]
     Route: 048
     Dates: start: 20090106, end: 20100312

REACTIONS (3)
  - CONJUNCTIVAL HAEMORRHAGE [None]
  - HEADACHE [None]
  - VOMITING [None]
